FAERS Safety Report 18455069 (Version 1)
Quarter: 2020Q4

REPORT INFORMATION
  Report Type: Spontaneous
  Country: US (occurrence: US)
  Receive Date: 20201102
  Receipt Date: 20201102
  Transmission Date: 20210114
  Serious: No
  Sender: FDA-Public Use
  Company Number: NVSC2020US285331

PATIENT
  Sex: Female

DRUGS (2)
  1. HYDROCORTISONE,NEOMYCIN,POLYMYCIN B SULPHATE [Suspect]
     Active Substance: HYDROCORTISONE\NEOMYCIN\POLYMYXIN B SULFATE
     Indication: PRODUCT USED FOR UNKNOWN INDICATION
     Dosage: 2 DRP, TID
     Route: 001
  2. CLINDAMYCIN. [Concomitant]
     Active Substance: CLINDAMYCIN
     Indication: PRODUCT USED FOR UNKNOWN INDICATION
     Dosage: UNK
     Route: 065

REACTIONS (3)
  - Swollen tongue [Unknown]
  - Ageusia [Unknown]
  - Lacrimation increased [Unknown]
